FAERS Safety Report 17870438 (Version 1)
Quarter: 2020Q2

REPORT INFORMATION
  Report Type: Report from Study
  Country: CA (occurrence: CA)
  Receive Date: 20200608
  Receipt Date: 20200608
  Transmission Date: 20200714
  Serious: Yes (Hospitalization)
  Sender: FDA-Public Use
  Company Number: CA-IPSEN BIOPHARMACEUTICALS, INC.-2020-09984

PATIENT
  Age: 62 Year
  Sex: Male

DRUGS (1)
  1. SOMATULINE AUTOGEL [Suspect]
     Active Substance: LANREOTIDE ACETATE
     Indication: NEUROENDOCRINE TUMOUR
     Dosage: 120 MG EVERY 28 DAYS
     Route: 058
     Dates: start: 20190607

REACTIONS (2)
  - Bile duct obstruction [Recovering/Resolving]
  - Bile duct stone [Recovering/Resolving]
